FAERS Safety Report 5493943-1 (Version None)
Quarter: 2007Q4

REPORT INFORMATION
  Report Type: 
  Country: None (occurrence: None)
  Receive Date: 20071023
  Receipt Date: 20070919
  Transmission Date: 20080405
  Serious: Yes (Other)
  Sender: FDA-Public Use
  Company Number: JP-MERCK-0709USA03540

PATIENT
  Sex: Male
  Weight: 2 kg

DRUGS (2)
  1. ALDOMET [Suspect]
     Route: 065
  2. AMLODIPINE BESYLATE [Concomitant]
     Route: 065

REACTIONS (2)
  - FOETAL DISORDER [None]
  - RESPIRATORY DISORDER [None]
